FAERS Safety Report 4524710-0 (Version None)
Quarter: 2004Q4

REPORT INFORMATION
  Report Type: 
  Country: None (occurrence: None)
  Receive Date: 20041211
  Receipt Date: 20041202
  Transmission Date: 20050328
  Serious: Yes (Hospitalization, Other)
  Sender: FDA-Public Use
  Company Number: US-MERCK-0412USA00631

PATIENT
  Age: 44 Year
  Sex: Female

DRUGS (29)
  1. VIOXX [Suspect]
     Route: 048
     Dates: start: 20000101
  2. VIOXX [Suspect]
     Route: 065
  3. ADVIL [Concomitant]
     Route: 065
  4. ASPIRIN [Concomitant]
     Route: 065
  5. ASPIRIN [Concomitant]
     Route: 048
  6. ASPIRIN [Concomitant]
     Route: 065
  7. ASPIRIN [Concomitant]
     Route: 065
  8. ULCERIN (CIMETIDINE) [Concomitant]
     Route: 048
     Dates: start: 20030320
  9. ULCERIN (CIMETIDINE) [Concomitant]
     Route: 048
     Dates: start: 20030320
  10. ZESTRIL [Concomitant]
     Route: 065
  11. PLAVIX [Concomitant]
     Route: 065
  12. AGYRAX (MECLIZINE HYDROCHLORIDE) [Concomitant]
     Route: 065
  13. AGYRAX (MECLIZINE HYDROCHLORIDE) [Concomitant]
     Route: 065
  14. ELAVIL [Concomitant]
     Route: 065
  15. TRAZODONE HYDROCHLORIDE [Concomitant]
     Route: 065
  16. PROTONIX [Concomitant]
     Route: 065
     Dates: start: 20031107
  17. PROTONIX [Concomitant]
     Route: 065
  18. PROTONIX [Concomitant]
     Route: 065
     Dates: start: 20010420
  19. ZOCOR [Concomitant]
     Route: 065
     Dates: start: 20031107
  20. ZOCOR [Concomitant]
     Route: 065
  21. CARAFATE [Concomitant]
     Route: 065
  22. LIPITOR [Concomitant]
     Route: 065
     Dates: start: 20031107
  23. HYDROCHLOROTHIAZIDE [Concomitant]
     Route: 065
     Dates: end: 20010205
  24. HYDROCHLOROTHIAZIDE [Concomitant]
     Route: 065
     Dates: end: 20010205
  25. ECOTRIN [Concomitant]
     Route: 065
     Dates: end: 20010420
  26. ECOTRIN [Concomitant]
     Route: 065
     Dates: end: 20010420
  27. NEXIUM [Concomitant]
     Route: 065
  28. NEXIUM [Concomitant]
     Route: 065
  29. AMINOPHYLLINE [Concomitant]
     Route: 065

REACTIONS (30)
  - ABDOMINAL PAIN UPPER [None]
  - ANXIETY [None]
  - BACK PAIN [None]
  - BLOOD CHOLESTEROL INCREASED [None]
  - BLOOD TRIGLYCERIDES INCREASED [None]
  - BREAST DISCOMFORT [None]
  - CARPAL TUNNEL SYNDROME [None]
  - CEREBROVASCULAR ACCIDENT [None]
  - CHEST PAIN [None]
  - CHRONIC OBSTRUCTIVE AIRWAYS DISEASE [None]
  - COSTOCHONDRITIS [None]
  - COUGH [None]
  - DRY MOUTH [None]
  - FATIGUE [None]
  - FEELING ABNORMAL [None]
  - GASTROOESOPHAGEAL REFLUX DISEASE [None]
  - HEADACHE [None]
  - HEMIPARESIS [None]
  - HYPERTENSION [None]
  - HYPOAESTHESIA ORAL [None]
  - HYPOTENSION [None]
  - INCREASED UPPER AIRWAY SECRETION [None]
  - INSOMNIA [None]
  - MONOPLEGIA [None]
  - MUSCULOSKELETAL CHEST PAIN [None]
  - PAIN [None]
  - PAINFUL RESPIRATION [None]
  - PLEURISY [None]
  - TRANSIENT ISCHAEMIC ATTACK [None]
  - UPPER RESPIRATORY TRACT INFECTION [None]
